FAERS Safety Report 8646020 (Version 10)
Quarter: 2013Q3

REPORT INFORMATION
  Report Type: Spontaneous
  Country: US (occurrence: US)
  Receive Date: 20120702
  Receipt Date: 20130903
  Transmission Date: 20140515
  Serious: Yes (Hospitalization, Disabling, Other)
  Sender: FDA-Public Use
  Company Number: US-009507513-1206USA04856

PATIENT
  Sex: Female
  Weight: 95.92 kg

DRUGS (6)
  1. FOSAMAX [Suspect]
     Indication: OSTEOPOROSIS
     Dosage: 10 MG, QAM
     Route: 048
     Dates: start: 20010305, end: 20010409
  2. FOSAMAX [Suspect]
     Dosage: 70 MG, QW
     Route: 048
     Dates: start: 20011001, end: 2011
  3. FOSAMAX [Suspect]
     Dosage: 70 MG, QD
     Route: 048
  4. FOSAMAX [Suspect]
     Dosage: 10MG WEEKLY
     Route: 048
     Dates: start: 20010305, end: 20010409
  5. FOSAMAX [Suspect]
     Indication: OSTEOPOROSIS
     Dosage: 70 MG, UNK
     Route: 048
     Dates: start: 200803
  6. CORTICOSTEROIDS (UNSPECIFIED) [Concomitant]
     Indication: PRODUCT USED FOR UNKNOWN INDICATION
     Dosage: UNK
     Route: 055
     Dates: start: 1998

REACTIONS (85)
  - Femur fracture [Unknown]
  - Osteoporosis [Not Recovered/Not Resolved]
  - Stress fracture [Not Recovered/Not Resolved]
  - Anaemia postoperative [Recovering/Resolving]
  - Open reduction of fracture [Unknown]
  - Closed fracture manipulation [Unknown]
  - Femur fracture [Not Recovered/Not Resolved]
  - Cholecystectomy [Unknown]
  - Open reduction of fracture [Unknown]
  - Low turnover osteopathy [Not Recovered/Not Resolved]
  - Knee arthroplasty [Unknown]
  - Hip arthroplasty [Unknown]
  - Renal failure chronic [Not Recovered/Not Resolved]
  - Osteomalacia [Recovering/Resolving]
  - Knee arthroplasty [Unknown]
  - Anaemia postoperative [Recovered/Resolved]
  - Hip fracture [Unknown]
  - Open reduction of fracture [Unknown]
  - Urethral pain [Unknown]
  - Fracture malunion [Unknown]
  - Fall [Unknown]
  - Knee arthroplasty [Unknown]
  - Joint resurfacing surgery [Unknown]
  - Device failure [Unknown]
  - Vitamin D deficiency [Unknown]
  - Calcium deficiency [Unknown]
  - Depression [Not Recovered/Not Resolved]
  - Elbow operation [Unknown]
  - Thoracic vertebral fracture [Unknown]
  - Chronic obstructive pulmonary disease [Unknown]
  - Blood cholesterol increased [Unknown]
  - Intervertebral disc disorder [Unknown]
  - Fall [Not Recovered/Not Resolved]
  - Arrhythmia [Unknown]
  - Overdose [Recovered/Resolved]
  - Dry eye [Unknown]
  - Tinnitus [Unknown]
  - Irritable bowel syndrome [Unknown]
  - Haemorrhoids [Unknown]
  - Thoracic vertebral fracture [Unknown]
  - Hypothyroidism [Unknown]
  - Creatinine renal clearance abnormal [Unknown]
  - Implant site inflammation [Unknown]
  - Radius fracture [Recovered/Resolved with Sequelae]
  - Hypergammaglobulinaemia benign monoclonal [Unknown]
  - Gait disturbance [Not Recovered/Not Resolved]
  - Increased tendency to bruise [Unknown]
  - Hyperparathyroidism [Unknown]
  - Anal fissure [Unknown]
  - Anal sphincterotomy [Unknown]
  - Haemorrhoid operation [Unknown]
  - Lipoma excision [Unknown]
  - Urinary tract infection [Not Recovered/Not Resolved]
  - Post-traumatic neck syndrome [Unknown]
  - Muscle strain [Unknown]
  - Myelopathy [Unknown]
  - Chronic obstructive pulmonary disease [Not Recovered/Not Resolved]
  - Miliaria [Unknown]
  - Rib fracture [Unknown]
  - Fall [Unknown]
  - Soft tissue injury [Unknown]
  - Ankle fracture [Unknown]
  - Tremor [Unknown]
  - Underdose [Unknown]
  - Venous insufficiency [Unknown]
  - Rib fracture [Recovering/Resolving]
  - Fall [Unknown]
  - Tendonitis [Unknown]
  - Adjustment disorder [Unknown]
  - Fall [Unknown]
  - Atrial fibrillation [Unknown]
  - Joint contracture [Unknown]
  - Pain [Not Recovered/Not Resolved]
  - Rheumatoid arthritis [Unknown]
  - Arthralgia [Unknown]
  - Back pain [Unknown]
  - Dyspepsia [Unknown]
  - Gastrooesophageal reflux disease [Unknown]
  - Vertigo [Unknown]
  - Headache [Not Recovered/Not Resolved]
  - Arthralgia [Unknown]
  - Pain in extremity [Unknown]
  - Arthralgia [Unknown]
  - Drug ineffective [Unknown]
  - Drug ineffective [Unknown]
